FAERS Safety Report 9548124 (Version 2)
Quarter: 2013Q4

REPORT INFORMATION
  Report Type: Spontaneous
  Country: GB (occurrence: GB)
  Receive Date: 20130924
  Receipt Date: 20131016
  Transmission Date: 20140711
  Serious: Yes (Other)
  Sender: FDA-Public Use
  Company Number: GB-JNJFOC-20130913080

PATIENT
  Age: 81 Year
  Sex: Female
  Weight: 71 kg

DRUGS (16)
  1. XARELTO [Suspect]
     Indication: CEREBROVASCULAR ACCIDENT PROPHYLAXIS
     Route: 048
     Dates: start: 20120626, end: 20130614
  2. XARELTO [Suspect]
     Indication: ATRIAL FIBRILLATION
     Route: 048
     Dates: start: 20120626, end: 20130614
  3. PARACETAMOL [Concomitant]
     Route: 065
  4. ATORVASTATIN [Concomitant]
     Route: 065
  5. FUROSEMIDE [Concomitant]
     Route: 065
  6. HUMALOG MIX [Concomitant]
     Route: 065
  7. LANSOPRAZOLE [Concomitant]
     Route: 065
  8. LEVOTHYROXINE [Concomitant]
     Route: 065
  9. LOSARTAN [Concomitant]
     Route: 065
  10. METFORMIN [Concomitant]
     Route: 065
  11. PHENERGAN [Concomitant]
     Route: 065
  12. SERETIDE [Concomitant]
     Route: 065
  13. TERBUTALINE [Concomitant]
     Route: 065
  14. ALENDRONIC ACID [Concomitant]
     Route: 065
  15. VERAPAMIL [Concomitant]
     Route: 065
  16. ADCAL-D3 [Concomitant]
     Route: 065

REACTIONS (4)
  - Coagulation time prolonged [Recovered/Resolved]
  - Contusion [Recovering/Resolving]
  - Fatigue [Unknown]
  - Iron deficiency anaemia [Recovering/Resolving]
